FAERS Safety Report 8079122-2 (Version None)
Quarter: 2012Q1

REPORT INFORMATION
  Report Type: 
  Country: None (occurrence: None)
  Receive Date: 20120128
  Receipt Date: 20110818
  Transmission Date: 20120608
  Serious: No
  Sender: FDA-Public Use
  Company Number: US-ABBOTT-11P-163-0847866-00

PATIENT
  Sex: Male
  Weight: 102.15 kg

DRUGS (4)
  1. HUMIRA [Suspect]
     Indication: ARTHRALGIA
  2. AMLODIPINE [Concomitant]
     Indication: HYPERTENSION
  3. METOPROLOL TARTRATE [Concomitant]
     Indication: HYPERTENSION
  4. HUMIRA [Suspect]
     Indication: PSORIATIC ARTHROPATHY
     Dates: end: 20110601

REACTIONS (4)
  - ARTHRALGIA [None]
  - WEIGHT INCREASED [None]
  - ASTHENIA [None]
  - MOBILITY DECREASED [None]
